FAERS Safety Report 5241646-0 (Version None)
Quarter: 2007Q1

REPORT INFORMATION
  Report Type: 
  Country: None (occurrence: None)
  Receive Date: 20070220
  Receipt Date: 20070209
  Transmission Date: 20070707
  Serious: Yes (Hospitalization)
  Sender: FDA-Public Use
  Company Number: JP-ROCHE-481061

PATIENT
  Age: 12 Month
  Sex: Male
  Weight: 9 kg

DRUGS (2)
  1. ROCEPHIN [Suspect]
     Indication: BRONCHOPNEUMONIA
     Dosage: ROUTE REPORTED AS INTRAVENOUS (NOT OTHERWISE SPECIFIED).
     Route: 042
     Dates: start: 20070120, end: 20070124
  2. PREDONINE [Concomitant]
     Dosage: ROUTE REPORTED AS INTRAVENOUS (NOT OTHERWISE SPECIFIED).
     Route: 042
     Dates: start: 20070120, end: 20070122

REACTIONS (1)
  - HEPATITIS ACUTE [None]
